FAERS Safety Report 4365098-8 (Version None)
Quarter: 2004Q2

REPORT INFORMATION
  Report Type: 
  Country: None (occurrence: None)
  Receive Date: 20040521
  Receipt Date: 20040511
  Transmission Date: 20050107
  Serious: Yes (Hospitalization)
  Sender: FDA-Public Use
  Company Number: A02200401603

PATIENT
  Age: 56 Year
  Sex: Male

DRUGS (5)
  1. STILNOX         (ZOLPIDEM) [Suspect]
     Dosage: ORAL
     Route: 048
  2. LASIX [Suspect]
     Dosage: ORAL
     Route: 048
  3. INEXIUM (ESOMEPRAZOLE) [Concomitant]
  4. STABLON (TIANEPTINE) [Concomitant]
  5. COZAAR [Concomitant]

REACTIONS (2)
  - CONDITION AGGRAVATED [None]
  - HEPATIC ENCEPHALOPATHY [None]
